FAERS Safety Report 7346749-2 (Version None)
Quarter: 2011Q1

REPORT INFORMATION
  Report Type: 
  Country: None (occurrence: None)
  Receive Date: 20110311
  Receipt Date: 20101115
  Transmission Date: 20110831
  Serious: Yes (Other)
  Sender: FDA-Public Use
  Company Number: US-JNJFOC-20101206040

PATIENT

DRUGS (9)
  1. ACYCLOVIR [Concomitant]
     Indication: HERPES ZOSTER
     Route: 048
  2. DEXAMETHASONE [Suspect]
     Route: 048
  3. DEXAMETHASONE [Suspect]
     Route: 048
  4. DEXAMETHASONE [Suspect]
     Route: 048
  5. DEXAMETHASONE [Suspect]
     Dosage: ON DAYS 1-4
     Route: 048
  6. DEXAMETHASONE [Suspect]
     Route: 048
  7. DOXORUBICIN [Suspect]
     Indication: MULTIPLE MYELOMA
     Route: 042
  8. BORTEZOMIB [Suspect]
     Indication: MULTIPLE MYELOMA
     Route: 042
  9. DEXAMETHASONE [Suspect]
     Indication: MULTIPLE MYELOMA
     Route: 048

REACTIONS (1)
  - ARRHYTHMIA [None]
